FAERS Safety Report 8354035-7 (Version None)
Quarter: 2012Q2

REPORT INFORMATION
  Report Type: 
  Country: None (occurrence: None)
  Receive Date: 20120511
  Receipt Date: 20120430
  Transmission Date: 20120825
  Serious: Yes (Hospitalization)
  Sender: FDA-Public Use
  Company Number: US-ENDO PHARMACEUTICALS INC.-OPCR20120454

PATIENT
  Age: 61 Year
  Sex: Female

DRUGS (2)
  1. OPANA ER [Suspect]
     Indication: PAIN
     Route: 048
     Dates: start: 20120101
  2. OXYCODONE/ACETAMINOPHEN [Concomitant]
     Indication: BREAKTHROUGH PAIN

REACTIONS (2)
  - MALAISE [None]
  - DRUG INEFFECTIVE [None]
